FAERS Safety Report 9893710 (Version 2)
Quarter: 2014Q1

REPORT INFORMATION
  Report Type: Spontaneous
  Country: CH (occurrence: CH)
  Receive Date: 20140213
  Receipt Date: 20140213
  Transmission Date: 20141002
  Serious: Yes (Other)
  Sender: FDA-Public Use
  Company Number: CH-PFIZER INC-2014023887

PATIENT
  Age: 57 Year
  Sex: Male
  Weight: 83.5 kg

DRUGS (5)
  1. ATORVASTATIN CALCIUM [Suspect]
     Indication: CORONARY ARTERY DISEASE
     Dosage: 40 MG, 1X/DAY
     Route: 048
     Dates: start: 20060930
  2. ATORVASTATIN CALCIUM [Suspect]
     Indication: PERCUTANEOUS CORONARY INTERVENTION
  3. ACETYLSALICYLIC ACID [Concomitant]
     Indication: CORONARY ARTERY DISEASE
     Dosage: 100 MG, 1X/DAY
     Route: 048
     Dates: start: 1996
  4. CARVEDILOL [Concomitant]
     Indication: CORONARY ARTERY DISEASE
     Dosage: 12.5 MG, 2X/DAY
     Route: 048
     Dates: start: 2011
  5. METFORMIN [Concomitant]
     Indication: TYPE 2 DIABETES MELLITUS
     Dosage: 1000 MG, 2X/DAY
     Route: 048
     Dates: start: 20130615

REACTIONS (1)
  - Alopecia areata [Not Recovered/Not Resolved]
